FAERS Safety Report 5213284-7 (Version None)
Quarter: 2006Q4

REPORT INFORMATION
  Report Type: 
  Country: None (occurrence: None)
  Receive Date: 20061107
  Receipt Date: 20060726
  Transmission Date: 20070319
  Serious: No
  Sender: FDA-Public Use
  Company Number: 200614761BWH

PATIENT
  Age: 72 Year
  Sex: Male

DRUGS (3)
  1. LEVITRA [Suspect]
     Indication: ERECTILE DYSFUNCTION
     Dosage: 30 MG, ONCE, ORAL
     Route: 048
     Dates: start: 20060701
  2. BLOOD PRESSURE MEDICATION (NOS) [Concomitant]
  3. AMARYL [Concomitant]

REACTIONS (1)
  - ERECTILE DYSFUNCTION [None]
